FAERS Safety Report 9099389 (Version 1)
Quarter: 2013Q1

REPORT INFORMATION
  Report Type: Spontaneous
  Country: BR (occurrence: BR)
  Receive Date: 20130214
  Receipt Date: 20130214
  Transmission Date: 20140127
  Serious: Yes (Hospitalization, Other)
  Sender: FDA-Public Use
  Company Number: BR-BRISTOL-MYERS SQUIBB COMPANY-17365321

PATIENT
  Age: 57 Year
  Sex: Male

DRUGS (3)
  1. ONGLYZA TABS 5 MG [Suspect]
     Dosage: INTERR AND ONGLYZA TABS 2.5 MG STARTED
     Route: 048
  2. INSULIN [Concomitant]
  3. DIAMICRON [Concomitant]

REACTIONS (1)
  - Renal disorder [Unknown]
